FAERS Safety Report 4372189-4 (Version None)
Quarter: 2004Q2

REPORT INFORMATION
  Report Type: 
  Country: None (occurrence: None)
  Receive Date: 20040607
  Receipt Date: 20040527
  Transmission Date: 20050107
  Serious: Yes (Other)
  Sender: FDA-Public Use
  Company Number: GB-GLAXOSMITHKLINE-B0334141A

PATIENT
  Age: 22 Year
  Sex: Male

DRUGS (1)
  1. SEROXAT [Suspect]
     Indication: DEPRESSION
     Dosage: 20MG SEE DOSAGE TEXT
     Route: 065
     Dates: start: 20020828, end: 20020914

REACTIONS (6)
  - ABDOMINAL PAIN UPPER [None]
  - DEPRESSED MOOD [None]
  - HEADACHE [None]
  - HOMICIDAL IDEATION [None]
  - INTENTIONAL OVERDOSE [None]
  - SUICIDE ATTEMPT [None]
